FAERS Safety Report 12222672 (Version 1)
Quarter: 2016Q1

REPORT INFORMATION
  Report Type: Spontaneous
  Country: DE (occurrence: DE)
  Receive Date: 20160330
  Receipt Date: 20160330
  Transmission Date: 20160526
  Serious: Yes (Other)
  Sender: FDA-Public Use
  Company Number: DE-MYLANLABS-2016M1013220

PATIENT

DRUGS (2)
  1. PHENYTOIN. [Suspect]
     Active Substance: PHENYTOIN
     Indication: STATUS EPILEPTICUS
     Route: 042
  2. RETIGABINE [Concomitant]
     Active Substance: EZOGABINE
     Indication: PARTIAL SEIZURES
     Route: 065

REACTIONS (1)
  - Cardiac arrest [Recovered/Resolved]
